FAERS Safety Report 5147733-X (Version None)
Quarter: 2006Q4

REPORT INFORMATION
  Report Type: 
  Country: None (occurrence: None)
  Receive Date: 20061110
  Receipt Date: 20061027
  Transmission Date: 20070319
  Serious: Yes (Other)
  Sender: FDA-Public Use
  Company Number: PHBS2006DK17298

PATIENT
  Sex: Female

DRUGS (3)
  1. OXCARBAZEPINE [Suspect]
     Indication: EPILEPSY
     Dosage: 1600 MG AFTER PREGNANCY
  2. OXCARBAZEPINE [Suspect]
     Dosage: 1200 MG DURING 2ND TRIMESTER
  3. LAMOTRIGINE [Concomitant]
     Indication: EPILEPSY

REACTIONS (4)
  - CAESAREAN SECTION [None]
  - CONVULSION [None]
  - DRUG EXPOSURE DURING PREGNANCY [None]
  - PREMATURE LABOUR [None]
